FAERS Safety Report 4493348-6 (Version None)
Quarter: 2004Q4

REPORT INFORMATION
  Report Type: 
  Country: None (occurrence: None)
  Receive Date: 20041102
  Receipt Date: 20041018
  Transmission Date: 20050328
  Serious: No
  Sender: FDA-Public Use
  Company Number: 2004UW21682

PATIENT
  Age: 34 Year
  Sex: Female
  Weight: 61.234 kg

DRUGS (6)
  1. SEROQUEL [Suspect]
     Indication: INSOMNIA
     Dosage: 12.5  TO 50 MG
  2. MULTIVITAMIN [Concomitant]
  3. DEPAKOTE [Concomitant]
  4. LAMICTAL [Concomitant]
  5. ESKALITH [Concomitant]
  6. TOPAMAX [Concomitant]

REACTIONS (7)
  - BREAST CANCER [None]
  - HYPERTHYROIDISM [None]
  - LOSS OF CONSCIOUSNESS [None]
  - NARCOLEPSY [None]
  - ROAD TRAFFIC ACCIDENT [None]
  - SYNCOPE [None]
  - TACHYCARDIA [None]
